FAERS Safety Report 6074597-2 (Version None)
Quarter: 2009Q1

REPORT INFORMATION
  Report Type: 
  Country: None (occurrence: None)
  Receive Date: 20090209
  Receipt Date: 20090131
  Transmission Date: 20090719
  Serious: Yes (Other)
  Sender: FDA-Public Use
  Company Number: CHPA2009US01533

PATIENT
  Age: 5 Year
  Sex: Male

DRUGS (3)
  1. TRIAMINIC SRT [Suspect]
     Dosage: ORAL
     Route: 048
     Dates: start: 19880101
  2. ANTIDEPRESSANTS (NO INGREDIENTS/SUBSTANCES) [Concomitant]
  3. DRUG THERAPY NOS [Concomitant]

REACTIONS (3)
  - CONVULSION [None]
  - DEPRESSION [None]
  - PARANOIA [None]
